FAERS Safety Report 14740911 (Version 2)
Quarter: 2018Q4

REPORT INFORMATION
  Report Type: Spontaneous
  Country: US (occurrence: US)
  Receive Date: 20180410
  Receipt Date: 20181226
  Transmission Date: 20190204
  Serious: Yes (Other)
  Sender: FDA-Public Use
  Company Number: US-GLAXOSMITHKLINE-US2018GSK059965

PATIENT
  Sex: Female
  Weight: 95 kg

DRUGS (5)
  1. PANTOPRAZOLE [Suspect]
     Active Substance: PANTOPRAZOLE
     Indication: GASTROOESOPHAGEAL REFLUX DISEASE
     Dosage: 40 MG, QD
     Route: 048
  2. PREVACID [Suspect]
     Active Substance: LANSOPRAZOLE
     Indication: PRODUCT USED FOR UNKNOWN INDICATION
     Dosage: UNK
     Route: 065
  3. ESOMEPRAZOLE. [Suspect]
     Active Substance: ESOMEPRAZOLE MAGNESIUM
     Indication: GASTROOESOPHAGEAL REFLUX DISEASE
     Dosage: 40 MG, QD
     Route: 048
  4. PREVACID [Suspect]
     Active Substance: LANSOPRAZOLE
     Indication: PRODUCT USED FOR UNKNOWN INDICATION
     Dosage: UNK
     Route: 065
  5. OMEPRAZOLE. [Suspect]
     Active Substance: OMEPRAZOLE
     Indication: GASTROOESOPHAGEAL REFLUX DISEASE
     Dosage: 20 MG, QD
     Route: 048

REACTIONS (20)
  - Haematuria [Unknown]
  - Kidney infection [Unknown]
  - Device dependence [Unknown]
  - Chronic kidney disease [Unknown]
  - Pyelonephritis fungal [Unknown]
  - Renal failure [Unknown]
  - Nephrotic syndrome [Unknown]
  - Intercapillary glomerulosclerosis [Unknown]
  - Renal atrophy [Unknown]
  - Nephrogenic anaemia [Unknown]
  - Dialysis [Unknown]
  - Acute kidney injury [Unknown]
  - Kidney fibrosis [Unknown]
  - Proteinuria [Unknown]
  - Diabetic nephropathy [Unknown]
  - Diabetic end stage renal disease [Unknown]
  - Nephrolithiasis [Unknown]
  - Nephropathy [Unknown]
  - End stage renal disease [Unknown]
  - Haemodialysis [Unknown]
